FAERS Safety Report 25501645 (Version 2)
Quarter: 2025Q3

REPORT INFORMATION
  Report Type: Spontaneous
  Country: EU (occurrence: CH)
  Receive Date: 20250701
  Receipt Date: 20250708
  Transmission Date: 20251021
  Serious: Yes (Hospitalization, Other)
  Sender: CELLTRION
  Company Number: EU-ABBVIE-6119613

PATIENT

DRUGS (5)
  1. ADALIMUMAB [Suspect]
     Active Substance: ADALIMUMAB
     Indication: Crohn^s disease
     Route: 058
     Dates: start: 2022
  2. ADALIMUMAB [Suspect]
     Active Substance: ADALIMUMAB
     Dosage: 40 MG, EVERY 2 WEEKS
     Route: 058
     Dates: start: 201702
  3. INFLIXIMAB [Suspect]
     Active Substance: INFLIXIMAB
     Indication: Product used for unknown indication
     Dates: start: 201603, end: 201609
  4. AZATHIOPRINE [Concomitant]
     Active Substance: AZATHIOPRINE
     Indication: Product used for unknown indication
     Dates: start: 201809, end: 202001
  5. AZATHIOPRINE [Concomitant]
     Active Substance: AZATHIOPRINE
     Dates: start: 201609, end: 201804

REACTIONS (26)
  - Crohn^s disease [Unknown]
  - Facial paralysis [Unknown]
  - Jugular vein thrombosis [Unknown]
  - Mastoidectomy [Unknown]
  - Monoparesis [Unknown]
  - Papilloedema [Unknown]
  - Pyoderma gangrenosum [Unknown]
  - Sigmoid sinus thrombosis [Unknown]
  - Transverse sinus thrombosis [Unknown]
  - VIth nerve paralysis [Unknown]
  - Headache [Unknown]
  - Mastoiditis [Not Recovered/Not Resolved]
  - Sepsis [Not Recovered/Not Resolved]
  - Skin exfoliation [Unknown]
  - Trismus [Unknown]
  - Vision blurred [Unknown]
  - Adverse drug reaction [Unknown]
  - Eczema [Unknown]
  - Impaired healing [Unknown]
  - Inflammation [Unknown]
  - Otitis media [Not Recovered/Not Resolved]
  - Pain [Unknown]
  - Psoriasis [Unknown]
  - Rash [Unknown]
  - Staphylococcal infection [Unknown]
  - Drug ineffective [Unknown]

NARRATIVE: CASE EVENT DATE: 20170101
